FAERS Safety Report 9281011 (Version 1)
Quarter: 2013Q2

REPORT INFORMATION
  Report Type: Spontaneous
  Country: US (occurrence: None)
  Receive Date: 20130508
  Receipt Date: 20130508
  Transmission Date: 20140414
  Serious: No
  Sender: FDA-Public Use
  Company Number: None

PATIENT
  Sex: Female

DRUGS (2)
  1. PEGASYS [Suspect]
     Indication: ANAEMIA OF CHRONIC DISEASE
     Dosage: 180 MG/ 0.5 ML QW SQ
     Route: 058
     Dates: start: 20120917
  2. RIBAPAK [Suspect]
     Indication: ANAEMIA OF CHRONIC DISEASE
     Dosage: 1200 MG DAY PO
     Route: 048
     Dates: start: 20120917

REACTIONS (4)
  - Blood pressure increased [None]
  - Nausea [None]
  - Fatigue [None]
  - Pain [None]
